FAERS Safety Report 5724370-7 (Version None)
Quarter: 2008Q2

REPORT INFORMATION
  Report Type: 
  Country: None (occurrence: None)
  Receive Date: 20080430
  Receipt Date: 20080422
  Transmission Date: 20081010
  Serious: Yes (Hospitalization)
  Sender: FDA-Public Use
  Company Number: FR-PFIZER INC-2008035203

PATIENT
  Age: 12 Month
  Sex: Female

DRUGS (3)
  1. CEFPODOXIME PROXETIL SUSPENSION [Suspect]
     Indication: EAR INFECTION
     Route: 050
     Dates: start: 20080301, end: 20080301
  2. DOLIPRANE [Concomitant]
     Indication: EAR INFECTION
     Route: 048
  3. FUNGIZONE [Concomitant]
     Indication: FUNGAL INFECTION
     Route: 048
     Dates: start: 20080301

REACTIONS (2)
  - ANGIOEDEMA [None]
  - FACE OEDEMA [None]
